FAERS Safety Report 10106076 (Version 2)
Quarter: 2014Q2

REPORT INFORMATION
  Report Type: Other
  Country: US (occurrence: US)
  Receive Date: 20140424
  Receipt Date: 20140618
  Transmission Date: 20141212
  Serious: Yes (Death, Hospitalization, Other)
  Sender: FDA-Public Use
  Company Number: US-GSKPPD-2014GSK001777

PATIENT
  Age: 72 Year
  Sex: Male

DRUGS (7)
  1. AVANDIA [Suspect]
     Indication: DIABETES MELLITUS
     Dosage: AVANDIA WAS NOT LISTED AMONG THE PATIENT^S ADMISSION/DISCHARGE RECORDS.
     Route: 048
  2. ASPIRIN [Concomitant]
  3. COUMADIN [Concomitant]
  4. CARDIZEM CD [Concomitant]
  5. LASIX [Concomitant]
     Route: 048
  6. METOLAZONE [Concomitant]
  7. TOPROL XL [Concomitant]

REACTIONS (3)
  - Myocardial infarction [Not Recovered/Not Resolved]
  - Cardiac failure congestive [Not Recovered/Not Resolved]
  - Cardio-respiratory arrest [Fatal]
